FAERS Safety Report 22633051 (Version 1)
Quarter: 2023Q2

REPORT INFORMATION
  Report Type: Spontaneous
  Country: AU (occurrence: AU)
  Receive Date: 20230623
  Receipt Date: 20230623
  Transmission Date: 20230721
  Serious: Yes (Other)
  Sender: FDA-Public Use
  Company Number: AU-BAXTER-2023BAX024447

PATIENT
  Sex: Male

DRUGS (11)
  1. DOXORUBICIN [Suspect]
     Active Substance: DOXORUBICIN
     Indication: Central nervous system lymphoma
     Dosage: UNK, AS A PART OF 3 CYCLES OF DA-R-EPOCH
     Route: 065
  2. DOXORUBICIN [Suspect]
     Active Substance: DOXORUBICIN
     Dosage: UNK, AS A PART OF 2 CYCLES OF R-HYPER CVAD
     Route: 065
  3. CYCLOPHOSPHAMIDE [Suspect]
     Active Substance: CYCLOPHOSPHAMIDE
     Indication: Central nervous system lymphoma
     Dosage: UNK, AS A PART OF 3 CYCLES OF DA-R-EPOCH
     Route: 065
  4. CYCLOPHOSPHAMIDE [Suspect]
     Active Substance: CYCLOPHOSPHAMIDE
     Dosage: UNK, AS A PART OF 2 CYCLES OF R-HYPER CVAD
     Route: 065
  5. RITUXIMAB [Suspect]
     Active Substance: RITUXIMAB
     Indication: Central nervous system lymphoma
     Dosage: UNK, AS A PART OF 3 CYCLES OF DA-R-EPOCH
     Route: 065
  6. RITUXIMAB [Suspect]
     Active Substance: RITUXIMAB
     Dosage: UNK, AS A PART OF 2 CYCLES OF R-HYPER CVAD
     Route: 065
  7. PREDNISONE [Suspect]
     Active Substance: PREDNISONE
     Indication: Central nervous system lymphoma
     Dosage: UNK, AS A PART OF 3 CYCLES OF DA-R-EPOCH
     Route: 065
  8. VINCRISTINE [Suspect]
     Active Substance: VINCRISTINE
     Indication: Central nervous system lymphoma
     Dosage: UNK, AS A PART OF 3 CYCLES OF DA-R-EPOCH
     Route: 065
  9. VINCRISTINE [Suspect]
     Active Substance: VINCRISTINE
     Dosage: UNK, AS A PART OF 2 CYCLES OF R-HYPER CVAD
     Route: 065
  10. ETOPOSIDE [Suspect]
     Active Substance: ETOPOSIDE
     Indication: Central nervous system lymphoma
     Dosage: UNK, AS A PART OF 3 CYCLES OF DA-R-EPOCH
     Route: 065
  11. DEXAMETHASONE [Suspect]
     Active Substance: DEXAMETHASONE
     Indication: Central nervous system lymphoma
     Dosage: UNK, AS A PART OF 2 CYCLES OF R-HYPER CVAD
     Route: 065

REACTIONS (6)
  - Brain neoplasm malignant [Unknown]
  - Disease progression [Unknown]
  - Refractory cancer [Unknown]
  - Disease progression [Unknown]
  - Double hit lymphoma [Unknown]
  - Diffuse large B-cell lymphoma [Unknown]
